FAERS Safety Report 25185333 (Version 1)
Quarter: 2025Q2

REPORT INFORMATION
  Report Type: Spontaneous
  Country: US (occurrence: US)
  Receive Date: 20250410
  Receipt Date: 20250410
  Transmission Date: 20250717
  Serious: Yes (Hospitalization, Other)
  Sender: SANDOZ
  Company Number: US-SANDOZ-SDZ2023US001851

PATIENT
  Age: 67 Year
  Sex: Female
  Weight: 75.7 kg

DRUGS (29)
  1. FLUOROURACIL [Suspect]
     Active Substance: FLUOROURACIL
     Indication: Colorectal cancer
     Dosage: 4730 MG, Q2W
     Route: 042
     Dates: start: 20221222, end: 20230301
  2. FLUOROURACIL [Suspect]
     Active Substance: FLUOROURACIL
     Dosage: 790 MG, Q2W
     Route: 042
     Dates: start: 20221222, end: 20230301
  3. BEVACIZUMAB [Suspect]
     Active Substance: BEVACIZUMAB
     Indication: Colorectal cancer metastatic
     Dosage: 411 MG, Q2W
     Route: 042
     Dates: start: 20221222, end: 20230301
  4. IRINOTECAN [Suspect]
     Active Substance: IRINOTECAN
     Indication: Colorectal cancer metastatic
     Dosage: 355 MG, Q2W
     Route: 042
     Dates: start: 20221222, end: 20230301
  5. LEUCOVORIN CALCIUM [Suspect]
     Active Substance: LEUCOVORIN CALCIUM
     Indication: Colorectal cancer metastatic
     Dosage: 790 MG, Q2W
     Route: 042
     Dates: start: 20221222, end: 20230301
  6. ACETAMINOPHEN [Concomitant]
     Active Substance: ACETAMINOPHEN
     Indication: Abdominal pain
     Route: 065
     Dates: start: 20230310, end: 20230315
  7. BENADRYL [Concomitant]
     Active Substance: DIPHENHYDRAMINE HYDROCHLORIDE
     Indication: Stomatitis
     Route: 065
     Dates: start: 20230127
  8. CELECOXIB [Concomitant]
     Active Substance: CELECOXIB
     Indication: Arthritis
     Route: 065
     Dates: start: 20220407
  9. DULOXETINE [Concomitant]
     Active Substance: DULOXETINE
     Indication: Colorectal cancer
     Route: 065
     Dates: start: 20230316
  10. FENTANYL [Concomitant]
     Active Substance: FENTANYL
     Indication: Abdominal pain
     Route: 065
     Dates: start: 20230318
  11. HYDROMORPHONE [Concomitant]
     Active Substance: HYDROMORPHONE
     Indication: Abdominal pain
     Route: 065
     Dates: start: 20230311, end: 20230312
  12. IRON SUCROSE [Concomitant]
     Active Substance: IRON SUCROSE
     Indication: Anaemia
     Route: 065
     Dates: start: 20230311, end: 20230312
  13. LIDOCAINE [Concomitant]
     Active Substance: LIDOCAINE
     Indication: Abdominal pain
     Route: 065
     Dates: start: 20230318
  14. LIDOCAINE [Concomitant]
     Active Substance: LIDOCAINE
     Indication: Stomatitis
     Route: 065
     Dates: start: 20230127
  15. MAALOX ANTACID [Concomitant]
     Active Substance: ALUMINUM HYDROXIDE\DIMETHICONE\MAGNESIUM HYDROXIDE
     Indication: Stomatitis
     Route: 065
     Dates: start: 20230127
  16. MAGNESIUM [Concomitant]
     Active Substance: MAGNESIUM
     Indication: Hypomagnesaemia
     Route: 065
     Dates: start: 20230105
  17. MARINOL [Concomitant]
     Active Substance: DRONABINOL
     Indication: Abdominal pain
     Route: 065
     Dates: start: 20230318
  18. MARINOL [Concomitant]
     Active Substance: DRONABINOL
     Indication: Diarrhoea
  19. MELATONIN [Concomitant]
     Active Substance: MELATONIN
     Indication: Insomnia
     Route: 065
     Dates: start: 20230311
  20. MIRALAX [Concomitant]
     Active Substance: POLYETHYLENE GLYCOL 3350
     Indication: Constipation
     Route: 065
     Dates: start: 20230105
  21. MIRTAZAPINE [Concomitant]
     Active Substance: MIRTAZAPINE
     Indication: Insomnia
     Route: 065
     Dates: start: 20220505
  22. NALOXONE [Concomitant]
     Active Substance: NALOXONE
     Indication: Abdominal pain
     Route: 065
     Dates: start: 20230311, end: 20230315
  23. NEULASTA [Concomitant]
     Active Substance: PEGFILGRASTIM
     Indication: Leukocytosis
     Route: 065
     Dates: start: 20221227
  24. ONDANSETRON [Concomitant]
     Active Substance: ONDANSETRON
     Indication: Abdominal pain
     Route: 065
     Dates: start: 20230311, end: 20230315
  25. PANTOPRAZOLE [Concomitant]
     Active Substance: PANTOPRAZOLE
     Indication: Abdominal pain
     Route: 065
     Dates: start: 20230311, end: 20230315
  26. SODIUM CHLORIDE [Concomitant]
     Active Substance: SODIUM CHLORIDE
     Indication: Diarrhoea
     Route: 065
     Dates: start: 20230309, end: 20230316
  27. TRAMADOL [Concomitant]
     Active Substance: TRAMADOL
     Indication: Abdominal pain
     Route: 065
     Dates: start: 20221128
  28. XTAMPZA ER [Concomitant]
     Active Substance: OXYCODONE
     Indication: Abdominal pain
     Route: 065
     Dates: start: 20221207
  29. XTAMPZA ER [Concomitant]
     Active Substance: OXYCODONE
     Route: 065
     Dates: start: 20230313, end: 20230315

REACTIONS (2)
  - Small intestinal obstruction [Not Recovered/Not Resolved]
  - Adenocarcinoma metastatic [Unknown]

NARRATIVE: CASE EVENT DATE: 20230318
